FAERS Safety Report 20768749 (Version 1)
Quarter: 2022Q2

REPORT INFORMATION
  Report Type: Spontaneous
  Country: AU (occurrence: None)
  Receive Date: 20220429
  Receipt Date: 20220429
  Transmission Date: 20220721
  Serious: Yes (Disabling)
  Sender: FDA-Public Use
  Company Number: AU-Orion Corporation ORION PHARMA-ENTC2022-0055

PATIENT
  Age: 88 Year
  Sex: Female
  Weight: 45 kg

DRUGS (4)
  1. STALEVO [Suspect]
     Active Substance: CARBIDOPA\ENTACAPONE\LEVODOPA
     Indication: Product used for unknown indication
     Route: 065
     Dates: start: 20211210
  2. STALEVO [Suspect]
     Active Substance: CARBIDOPA\ENTACAPONE\LEVODOPA
     Dosage: STRENGTH: 50/12.5/200MG, 4 TO 6 TABLETS AT 3.5 HR INTERVALS
     Route: 065
     Dates: start: 202202, end: 20220314
  3. STALEVO [Suspect]
     Active Substance: CARBIDOPA\ENTACAPONE\LEVODOPA
     Dosage: STRENGTH: 50/12.5/200MG, 4 TABLETS AT 3.5 HR INTERVALS
     Route: 065
     Dates: start: 20220314, end: 20220331
  4. STALEVO [Suspect]
     Active Substance: CARBIDOPA\ENTACAPONE\LEVODOPA
     Dosage: STRENGTH: 75/18.75/200MG, 5 TABLETS AT 3.5 HR INTERVALS
     Route: 065
     Dates: start: 20220331

REACTIONS (17)
  - Tremor [Unknown]
  - Disorientation [Unknown]
  - Confusional state [Unknown]
  - Separation anxiety disorder [Unknown]
  - Product complaint [Unknown]
  - Product quality issue [Unknown]
  - Fatigue [Unknown]
  - Restlessness [Unknown]
  - Fear [Unknown]
  - Initial insomnia [Recovering/Resolving]
  - Diarrhoea [Recovered/Resolved]
  - Abdominal pain upper [Unknown]
  - Skin discolouration [Unknown]
  - Dizziness [Unknown]
  - Pain in extremity [Unknown]
  - Frustration tolerance decreased [Unknown]
  - Hyperhidrosis [Unknown]

NARRATIVE: CASE EVENT DATE: 20211201
